FAERS Safety Report 9998207 (Version 1)
Quarter: 2014Q1

REPORT INFORMATION
  Report Type: Spontaneous
  Country: US (occurrence: US)
  Receive Date: 20140311
  Receipt Date: 20140311
  Transmission Date: 20141002
  Serious: Yes (Disabling)
  Sender: FDA-Public Use
  Company Number: CHPA2014US003616

PATIENT
  Age: 80 Year
  Sex: Female

DRUGS (2)
  1. ALPHA-KERI MOISTURE RICH OIL [Suspect]
     Indication: ECZEMA ASTEATOTIC
     Dosage: UNK
     Route: 061
  2. ALPHA-KERI MOISTURE RICH OIL [Suspect]
     Indication: OFF LABEL USE

REACTIONS (2)
  - Sight disability [Not Recovered/Not Resolved]
  - Therapeutic response unexpected [Unknown]
